FAERS Safety Report 5910095-1 (Version None)
Quarter: 2008Q4

REPORT INFORMATION
  Report Type: 
  Country: None (occurrence: None)
  Receive Date: 20081007
  Receipt Date: 20070911
  Transmission Date: 20090506
  Serious: No
  Sender: FDA-Public Use
  Company Number: US-ASTRAZENECA-2007UW21418

PATIENT
  Age: 79 Year
  Sex: Female
  Weight: 59.9 kg

DRUGS (3)
  1. ARIMIDEX [Suspect]
     Indication: BREAST CANCER
     Route: 048
     Dates: start: 20060101
  2. ALDAMET [Concomitant]
  3. ACE INHIBITOR [Concomitant]

REACTIONS (3)
  - ARTHRITIS [None]
  - HOT FLUSH [None]
  - NIGHT SWEATS [None]
